FAERS Safety Report 17225794 (Version 3)
Quarter: 2020Q3

REPORT INFORMATION
  Report Type: Spontaneous
  Country: JP (occurrence: JP)
  Receive Date: 20200102
  Receipt Date: 20200724
  Transmission Date: 20201102
  Serious: Yes (Other)
  Sender: FDA-Public Use
  Company Number: JP-FERRINGPH-2019FE08768

PATIENT
  Age: 89 Year
  Sex: Male
  Weight: 64 kg

DRUGS (3)
  1. SELARA [Concomitant]
     Active Substance: EPLERENONE
     Route: 065
  2. MINIRINMELT [Suspect]
     Active Substance: DESMOPRESSIN ACETATE
     Indication: NOCTURIA
     Dosage: 25 UG
     Route: 048
     Dates: start: 20191126, end: 20191223
  3. SUNRYTHM [Concomitant]
     Active Substance: PILSICAINIDE HYDROCHLORIDE
     Dosage: UNK
     Route: 065
     Dates: start: 20110221, end: 20191225

REACTIONS (3)
  - Labelled drug-drug interaction medication error [Recovered/Resolved]
  - Cardiac failure acute [Recovering/Resolving]
  - Contraindicated product administered [Recovered/Resolved]

NARRATIVE: CASE EVENT DATE: 20191223
